FAERS Safety Report 5541972-1 (Version None)
Quarter: 2007Q4

REPORT INFORMATION
  Report Type: 
  Country: None (occurrence: None)
  Receive Date: 20071210
  Receipt Date: 20071204
  Transmission Date: 20080405
  Serious: Yes (Life-Threatening)
  Sender: FDA-Public Use
  Company Number: TR-AVENTIS-200718523GDDC

PATIENT
  Sex: Female
  Weight: 42 kg

DRUGS (5)
  1. LANTUS [Suspect]
     Route: 058
     Dates: start: 20070702, end: 20070702
  2. AUTOPEN INSULIN INJECTION PEN [Suspect]
  3. DIAMEPRID [Concomitant]
     Dosage: DOSE QUANTITY: 2
     Route: 048
  4. ROSIGLITAZONE [Concomitant]
     Dosage: DOSE QUANTITY: 1
     Route: 048
  5. TARDEN [Concomitant]
     Dosage: DOSE QUANTITY: 1
     Route: 048

REACTIONS (3)
  - ARRHYTHMIA [None]
  - FATIGUE [None]
  - HYPOTENSION [None]
